FAERS Safety Report 7557155-X (Version None)
Quarter: 2011Q2

REPORT INFORMATION
  Report Type: 
  Country: None (occurrence: None)
  Receive Date: 20110616
  Receipt Date: 20110616
  Transmission Date: 20111010
  Serious: Yes (Hospitalization)
  Sender: FDA-Public Use
  Company Number: None

PATIENT
  Age: 71 Year
  Sex: Male
  Weight: 61.3 kg

DRUGS (3)
  1. DABIGATRAN 150 MG BOEHRINGER INGELHEIM [Suspect]
     Indication: OFF LABEL USE
     Dosage: 150 MG TWICE A DAY PO
     Route: 048
  2. DABIGATRAN 150 MG BOEHRINGER INGELHEIM [Suspect]
     Indication: DEEP VEIN THROMBOSIS
     Dosage: 150 MG TWICE A DAY PO
     Route: 048
  3. DABIGATRAN 150 MG BOEHRINGER INGELHEIM [Suspect]
     Indication: ATRIAL FIBRILLATION
     Dosage: 150 MG TWICE A DAY PO
     Route: 048

REACTIONS (6)
  - HAEMORRHAGIC ANAEMIA [None]
  - PALPITATIONS [None]
  - HAEMORRHAGIC EROSIVE GASTRITIS [None]
  - COLONIC POLYP [None]
  - ATRIAL FIBRILLATION [None]
  - ASTHENIA [None]
